FAERS Safety Report 8395811-4 (Version None)
Quarter: 2012Q1

REPORT INFORMATION
  Report Type: 
  Country: None (occurrence: None)
  Receive Date: 20120323
  Receipt Date: 20110330
  Transmission Date: 20120608
  Serious: Yes (Other)
  Sender: FDA-Public Use
  Company Number: 163-21880-11033596

PATIENT
  Age: 70 Year
  Sex: Female

DRUGS (3)
  1. REVLIMID [Suspect]
     Indication: MULTIPLE MYELOMA
     Dosage: 25 MG, 1 IN 1 D, PO ; 5MG-10MG, PO ; 5 MG, DAILY X 21 DAYS, PO
     Route: 048
     Dates: start: 20090401
  2. REVLIMID [Suspect]
     Indication: MULTIPLE MYELOMA
     Dosage: 25 MG, 1 IN 1 D, PO ; 5MG-10MG, PO ; 5 MG, DAILY X 21 DAYS, PO
     Route: 048
     Dates: start: 20100301
  3. REVLIMID [Suspect]
     Indication: MULTIPLE MYELOMA
     Dosage: 25 MG, 1 IN 1 D, PO ; 5MG-10MG, PO ; 5 MG, DAILY X 21 DAYS, PO
     Route: 048
     Dates: start: 20100401

REACTIONS (1)
  - PANCYTOPENIA [None]
